FAERS Safety Report 12651438 (Version 1)
Quarter: 2016Q3

REPORT INFORMATION
  Report Type: Spontaneous
  Country: US (occurrence: None)
  Receive Date: 20160812
  Receipt Date: 20160812
  Transmission Date: 20161109
  Serious: Yes (Other)
  Sender: FDA-Public Use
  Company Number: None

PATIENT

DRUGS (2)
  1. LORAZEPAM IN 0.9% NACL IN 150 ML, 1 MG/ML PHARMEDIUM [Suspect]
     Active Substance: LORAZEPAM
  2. MAGNESIUM SULFATE (PF) IN D5W, 2 GM/ 50 ML VIAFLEX BAG PHARMEDIUM [Suspect]
     Active Substance: MAGNESIUM SULFATE

REACTIONS (2)
  - Product barcode issue [None]
  - Wrong drug administered [None]

NARRATIVE: CASE EVENT DATE: 20160722
